FAERS Safety Report 8541321-0 (Version None)
Quarter: 2012Q3

REPORT INFORMATION
  Report Type: 
  Country: None (occurrence: None)
  Receive Date: 20120726
  Receipt Date: 20120720
  Transmission Date: 20120928
  Serious: Yes (Hospitalization)
  Sender: FDA-Public Use
  Company Number: JP-009507513-1207JPN008136

PATIENT

DRUGS (3)
  1. TEGRETOL [Suspect]
     Indication: EPILEPSY
     Dosage: DAILY DOSAGE UNKNOWN
     Route: 048
     Dates: start: 20120301, end: 20120501
  2. TEMODAL [Suspect]
     Route: 041
     Dates: start: 20120321, end: 20120501
  3. KEPPRA [Suspect]
     Indication: EPILEPSY
     Dosage: DAILY DOSAGE UNKNOWN
     Route: 048
     Dates: start: 20120301, end: 20120501

REACTIONS (1)
  - DRUG ERUPTION [None]
